FAERS Safety Report 13013691 (Version 1)
Quarter: 2016Q4

REPORT INFORMATION
  Report Type: Spontaneous
  Country: MX (occurrence: MX)
  Receive Date: 20161209
  Receipt Date: 20161209
  Transmission Date: 20170207
  Serious: Yes (Death)
  Sender: FDA-Public Use
  Company Number: MX-TORRENT-00000081

PATIENT
  Age: 85 Year
  Sex: Female

DRUGS (1)
  1. MEMANTINE. [Suspect]
     Active Substance: MEMANTINE
     Indication: MEMORY IMPAIRMENT
     Dosage: ONE 10 MG TABLET PER DAY
     Route: 048
     Dates: end: 20161122

REACTIONS (2)
  - Off label use [Unknown]
  - Death [Fatal]
